FAERS Safety Report 5301274-5 (Version None)
Quarter: 2007Q1

REPORT INFORMATION
  Report Type: 
  Country: None (occurrence: None)
  Receive Date: 20070201
  Receipt Date: 20061219
  Transmission Date: 20070707
  Serious: No
  Sender: FDA-Public Use
  Company Number: 2006PV027159

PATIENT
  Age: 61 Year
  Sex: Female
  Weight: 89.8122 kg

DRUGS (9)
  1. BYETTA [Suspect]
     Indication: DIABETES MELLITUS NON-INSULIN-DEPENDENT
     Dosage: SEE IMAGE
     Route: 058
     Dates: start: 20061103, end: 20061214
  2. BYETTA [Suspect]
     Indication: DIABETES MELLITUS NON-INSULIN-DEPENDENT
     Dosage: SEE IMAGE
     Route: 058
     Dates: start: 20061215
  3. AVAPRO [Suspect]
     Indication: PROPHYLAXIS
     Dosage: 150 MG;QD;PO
     Route: 048
  4. AVAPRO [Suspect]
     Indication: RENAL DISORDER
     Dosage: 150 MG;QD;PO
     Route: 048
  5. VITAMIN B-12 [Concomitant]
  6. SIMVASTATIN [Concomitant]
  7. IRON [Concomitant]
  8. GLUCOPHAGE [Concomitant]
  9. AVANDIA [Concomitant]

REACTIONS (4)
  - BLOOD GLUCOSE INCREASED [None]
  - DRUG INEFFECTIVE [None]
  - NASOPHARYNGITIS [None]
  - WEIGHT DECREASED [None]
